FAERS Safety Report 21886303 (Version 1)
Quarter: 2023Q1

REPORT INFORMATION
  Report Type: Spontaneous
  Country: FR (occurrence: FR)
  Receive Date: 20230119
  Receipt Date: 20230119
  Transmission Date: 20230418
  Serious: Yes (Hospitalization)
  Sender: FDA-Public Use
  Company Number: None

PATIENT
  Age: 71 Year
  Sex: Male
  Weight: 77 kg

DRUGS (2)
  1. FUROSEMIDE [Interacting]
     Active Substance: FUROSEMIDE
     Indication: Hypovolaemia
     Dosage: NOT SPECIFIED
     Route: 065
     Dates: start: 20220702, end: 20220711
  2. GENTAMICIN [Interacting]
     Active Substance: GENTAMICIN
     Indication: Blood culture positive
     Dosage: NOT SPECIFIED
     Route: 042
     Dates: start: 20220630

REACTIONS (2)
  - Drug interaction [Recovered/Resolved]
  - Acute kidney injury [Recovered/Resolved]

NARRATIVE: CASE EVENT DATE: 20220630
